FAERS Safety Report 11089141 (Version 1)
Quarter: 2015Q2

REPORT INFORMATION
  Report Type: Report from Study
  Country: IT (occurrence: IT)
  Receive Date: 20150505
  Receipt Date: 20150505
  Transmission Date: 20150821
  Serious: Yes (Death, Other)
  Sender: FDA-Public Use
  Company Number: IT-ROCHE-1200921

PATIENT

DRUGS (3)
  1. FOTEMUSTINE [Suspect]
     Active Substance: FOTEMUSTINE
     Indication: GLIOBLASTOMA
     Route: 065
  2. BEVACIZUMAB [Suspect]
     Active Substance: BEVACIZUMAB
     Indication: GLIOBLASTOMA
     Route: 065
  3. IRINOTECAN [Suspect]
     Active Substance: IRINOTECAN
     Indication: GLIOBLASTOMA
     Route: 065

REACTIONS (12)
  - Pulmonary embolism [Unknown]
  - Diverticulitis [Unknown]
  - Tumour haemorrhage [Unknown]
  - Ischaemic stroke [Unknown]
  - Epididymitis [Unknown]
  - Pneumonitis [Unknown]
  - Deep vein thrombosis [Unknown]
  - Hypertension [Unknown]
  - Mucosal inflammation [Unknown]
  - Sudden death [Fatal]
  - Venous thrombosis [Unknown]
  - Colitis ischaemic [Unknown]
